FAERS Safety Report 17081997 (Version 5)
Quarter: 2020Q1

REPORT INFORMATION
  Report Type: Spontaneous
  Country: US (occurrence: US)
  Receive Date: 20191127
  Receipt Date: 20200224
  Transmission Date: 20200409
  Serious: Yes (Hospitalization)
  Sender: FDA-Public Use
  Company Number: US-PFIZER INC-2019507014

PATIENT

DRUGS (1)
  1. FENTANYL CITRATE. [Suspect]
     Active Substance: FENTANYL CITRATE
     Indication: PAIN
     Dosage: 400 UG, UNK [DOSES OF 100 UG]
     Route: 042
     Dates: start: 20191119

REACTIONS (7)
  - Product container issue [Unknown]
  - Drug ineffective for unapproved indication [Unknown]
  - Alcohol interaction [Unknown]
  - Product tampering [Unknown]
  - Product storage error [Unknown]
  - Drug interaction [Unknown]
  - Off label use [Unknown]

NARRATIVE: CASE EVENT DATE: 20191119
